FAERS Safety Report 23242542 (Version 1)
Quarter: 2023Q4

REPORT INFORMATION
  Report Type: Spontaneous
  Country: BR (occurrence: BR)
  Receive Date: 20231129
  Receipt Date: 20231129
  Transmission Date: 20240110
  Serious: Yes (Hospitalization)
  Sender: FDA-Public Use
  Company Number: BR-AMGEN-BRASP2023210329

PATIENT
  Age: 77 Year
  Sex: Female

DRUGS (4)
  1. PROLIA [Suspect]
     Active Substance: DENOSUMAB
     Indication: Bone density abnormal
     Dosage: UNK
     Route: 065
  2. OMEGA 3 [Concomitant]
     Active Substance: CAPSAICIN
  3. GLUTAMINE [Concomitant]
     Active Substance: GLUTAMINE
  4. CREATINE [Concomitant]
     Active Substance: CREATINE

REACTIONS (3)
  - Sepsis [Recovering/Resolving]
  - Bone density decreased [Recovering/Resolving]
  - Jaw disorder [Recovering/Resolving]
